FAERS Safety Report 6619020-1 (Version None)
Quarter: 2010Q1

REPORT INFORMATION
  Report Type: 
  Country: None (occurrence: None)
  Receive Date: 20100308
  Receipt Date: 20100303
  Transmission Date: 20100710
  Serious: Yes (Death, Hospitalization)
  Sender: FDA-Public Use
  Company Number: PHEH2010US02599

PATIENT
  Sex: Male

DRUGS (1)
  1. RECLAST [Suspect]
     Dosage: UNK
     Dates: start: 20080901

REACTIONS (6)
  - ASPIRATION [None]
  - CARDIAC VALVE DISEASE [None]
  - DYSPHAGIA [None]
  - JAW DISORDER [None]
  - PNEUMONIA [None]
  - PULMONARY VASCULAR DISORDER [None]
